FAERS Safety Report 8470482 (Version 7)
Quarter: 2013Q2

REPORT INFORMATION
  Report Type: Report from Study
  Country: MX (occurrence: MX)
  Receive Date: 20120321
  Receipt Date: 20130419
  Transmission Date: 20140414
  Serious: Yes (Hospitalization)
  Sender: FDA-Public Use
  Company Number: MX-ABBOTT-12P-107-0915810-00

PATIENT
  Age: 62 Year
  Sex: Female
  Weight: 73 kg

DRUGS (1)
  1. HUMIRA 40 MG/ 0.8 ML PRE-FILLED SYRINGE [Suspect]
     Indication: RHEUMATOID ARTHRITIS
     Route: 058
     Dates: start: 201006, end: 201112

REACTIONS (6)
  - Speech disorder [Recovering/Resolving]
  - Central nervous system infection [Recovering/Resolving]
  - Headache [Recovering/Resolving]
  - Amnesia [Recovering/Resolving]
  - Mobility decreased [Recovering/Resolving]
  - Anaemia [Recovering/Resolving]
